FAERS Safety Report 8288182-5 (Version None)
Quarter: 2012Q2

REPORT INFORMATION
  Report Type: 
  Country: None (occurrence: None)
  Receive Date: 20120416
  Receipt Date: 20120405
  Transmission Date: 20120825
  Serious: Yes (Hospitalization)
  Sender: FDA-Public Use
  Company Number: IT-VERTEX PHARMACEUTICALS INC.-000000000000000398

PATIENT
  Sex: Female
  Weight: 92 kg

DRUGS (4)
  1. TELAPREVIR [Suspect]
     Indication: HEPATITIS C
     Dosage: DOSAGE FORM: TABLET
     Route: 048
     Dates: start: 20120215
  2. PEGASYS [Concomitant]
     Indication: HEPATITIS C
     Dates: start: 20120215
  3. RIBAVIRIN [Concomitant]
     Route: 048
     Dates: start: 20120319
  4. RIBAVIRIN [Concomitant]
     Indication: HEPATITIS C
     Route: 048
     Dates: start: 20120215

REACTIONS (1)
  - RENAL FAILURE ACUTE [None]
